FAERS Safety Report 9730131 (Version 4)
Quarter: 2014Q1

REPORT INFORMATION
  Report Type: Spontaneous
  Country: FR (occurrence: FR)
  Receive Date: 20131204
  Receipt Date: 20140331
  Transmission Date: 20141002
  Serious: Yes (Other)
  Sender: FDA-Public Use
  Company Number: FR-RB-061041-13

PATIENT
  Age: 21 Year
  Sex: Male

DRUGS (3)
  1. SUBOXONE TABLET [Suspect]
     Indication: PRODUCT USED FOR UNKNOWN INDICATION
     Route: 065
  2. TEGRETOL [Concomitant]
     Indication: EPILEPSY
     Dosage: DOSING DETAILS UNKNOWN
     Route: 065
  3. KEPPRA [Concomitant]
     Indication: EPILEPSY
     Dosage: DOSING DETAILS UNKNOWN
     Route: 065

REACTIONS (1)
  - Epilepsy [Unknown]
